FAERS Safety Report 13601970 (Version 1)
Quarter: 2017Q2

REPORT INFORMATION
  Report Type: Spontaneous
  Country: US (occurrence: IN)
  Receive Date: 20170601
  Receipt Date: 20170601
  Transmission Date: 20170830
  Serious: Yes (Life-Threatening, Other)
  Sender: FDA-Public Use
  Company Number: IN-FRESENIUS KABI-FK201704659

PATIENT
  Age: 11 Year
  Sex: Male

DRUGS (1)
  1. PYRIDOXINE (MANUFACTURER UNKNOWN) [Suspect]
     Active Substance: PYRIDOXINE
     Indication: CYSTATHIONINE BETA-SYNTHASE DEFICIENCY
     Route: 065

REACTIONS (3)
  - Cerebrovascular accident [Unknown]
  - Drug ineffective for unapproved indication [Unknown]
  - Product use issue [Unknown]
